FAERS Safety Report 19795189 (Version 1)
Quarter: 2021Q3

REPORT INFORMATION
  Report Type: Spontaneous
  Country: SK (occurrence: SK)
  Receive Date: 20210907
  Receipt Date: 20210907
  Transmission Date: 20211014
  Serious: Yes (Death, Hospitalization)
  Sender: FDA-Public Use
  Company Number: SK-BAUSCH-BL-2021-029564

PATIENT

DRUGS (7)
  1. CYCLOPHOSPHAMIDE. [Suspect]
     Active Substance: CYCLOPHOSPHAMIDE
     Indication: ACQUIRED HAEMOPHILIA
     Route: 065
  2. PREDNISONE. [Suspect]
     Active Substance: PREDNISONE
     Indication: ACQUIRED HAEMOPHILIA
     Route: 065
  3. PARA?AMINOBENZOIC ACID [Suspect]
     Active Substance: AMINOBENZOIC ACID
     Indication: ACQUIRED HAEMOPHILIA
     Route: 065
  4. FLUCONAZOLE. [Suspect]
     Active Substance: FLUCONAZOLE
     Indication: ACQUIRED HAEMOPHILIA
     Route: 065
  5. DEXAMETHASONE. [Suspect]
     Active Substance: DEXAMETHASONE
     Indication: ACQUIRED HAEMOPHILIA
     Route: 065
  6. ETHAMSYLATE [Suspect]
     Active Substance: ETHAMSYLATE
     Indication: ACQUIRED HAEMOPHILIA
     Route: 065
  7. RITUXIMAB. [Suspect]
     Active Substance: RITUXIMAB
     Indication: ACQUIRED HAEMOPHILIA
     Route: 042

REACTIONS (5)
  - Disease recurrence [Unknown]
  - Cardiopulmonary failure [Fatal]
  - Haemorrhage [Unknown]
  - Off label use [Unknown]
  - Cystitis [Unknown]
